FAERS Safety Report 9187849 (Version 1)
Quarter: 2013Q1

REPORT INFORMATION
  Report Type: Spontaneous
  Country: US (occurrence: US)
  Receive Date: 20130325
  Receipt Date: 20130325
  Transmission Date: 20140127
  Serious: No
  Sender: FDA-Public Use
  Company Number: US-MYLANLABS-2012S1012608

PATIENT
  Age: 50 Year
  Sex: Female
  Weight: 199.13 kg

DRUGS (12)
  1. FENTANYL TRANSDERMAL SYSTEM [Suspect]
     Indication: PAIN
     Dosage: Q72HR
     Route: 062
     Dates: start: 20120615
  2. NEXIUM [Concomitant]
     Indication: GASTROOESOPHAGEAL REFLUX DISEASE
  3. TOPAMAX [Concomitant]
     Indication: MIGRAINE
  4. ALDACTONE [Concomitant]
     Indication: FLUID RETENTION
  5. LEXAPRO [Concomitant]
     Indication: DEPRESSION
  6. ENALAPRIL [Concomitant]
     Indication: BLOOD PRESSURE INCREASED
  7. MIRAPEX [Concomitant]
     Indication: RESTLESS LEGS SYNDROME
  8. ASPIRIN [Concomitant]
     Indication: PROPHYLAXIS
  9. XANAX [Concomitant]
     Indication: ANXIETY
  10. MAXALT [Concomitant]
     Indication: MIGRAINE
  11. SONATA [Concomitant]
     Indication: INSOMNIA
  12. ZOCOR [Concomitant]
     Indication: BLOOD CHOLESTEROL INCREASED

REACTIONS (2)
  - Headache [Not Recovered/Not Resolved]
  - Hot flush [Not Recovered/Not Resolved]
